FAERS Safety Report 5919387-3 (Version None)
Quarter: 2008Q4

REPORT INFORMATION
  Report Type: 
  Country: None (occurrence: None)
  Receive Date: 20081014
  Receipt Date: 20081014
  Transmission Date: 20090506
  Serious: Yes (Hospitalization)
  Sender: FDA-Public Use
  Company Number: None

PATIENT
  Sex: Female
  Weight: 45 kg

DRUGS (2)
  1. DILAUDID [Suspect]
     Indication: JOINT SURGERY
     Dosage: 1 MG Q4H PRN IV
     Route: 042
     Dates: start: 20080604, end: 20080604
  2. DILAUDID [Suspect]
     Indication: POSTOPERATIVE CARE
     Dosage: 1 MG Q4H PRN IV
     Route: 042
     Dates: start: 20080604, end: 20080604

REACTIONS (3)
  - HYPOTENSION [None]
  - LETHARGY [None]
  - RESPIRATORY DISTRESS [None]
